FAERS Safety Report 5635561-8 (Version None)
Quarter: 2008Q1

REPORT INFORMATION
  Report Type: 
  Country: None (occurrence: None)
  Receive Date: 20080222
  Receipt Date: 20080212
  Transmission Date: 20080703
  Serious: Yes (Other)
  Sender: FDA-Public Use
  Company Number: JP-PFIZER INC-2008014965

PATIENT
  Sex: Female

DRUGS (2)
  1. ZOLOFT [Suspect]
     Route: 048
  2. DOGMATYL [Concomitant]

REACTIONS (4)
  - CARDIAC FAILURE [None]
  - MALAISE [None]
  - MUSCULAR WEAKNESS [None]
  - STRESS CARDIOMYOPATHY [None]
